FAERS Safety Report 14967820 (Version 1)
Quarter: 2018Q2

REPORT INFORMATION
  Report Type: Spontaneous
  Country: US (occurrence: US)
  Receive Date: 20180604
  Receipt Date: 20180604
  Transmission Date: 20180711
  Serious: No
  Sender: FDA-Public Use
  Company Number: US-PFIZER INC-2018222979

PATIENT
  Sex: Female
  Weight: 54 kg

DRUGS (1)
  1. TOPOTECAN HYDROCHLORIDE. [Suspect]
     Active Substance: TOPOTECAN HYDROCHLORIDE
     Dosage: UNK, CYCLIC (3 WEEKS AND OFF OF IT FOR 1)

REACTIONS (1)
  - Neoplasm progression [Unknown]
